FAERS Safety Report 5904456-4 (Version None)
Quarter: 2008Q4

REPORT INFORMATION
  Report Type: 
  Country: None (occurrence: None)
  Receive Date: 20081001
  Receipt Date: 20080922
  Transmission Date: 20090506
  Serious: Yes (Hospitalization)
  Sender: FDA-Public Use
  Company Number: PHHO2008FR01761

PATIENT
  Sex: Male

DRUGS (2)
  1. ERL 080A ERL+TAB [Suspect]
     Indication: RENAL TRANSPLANT
     Dosage: 1080 MG, BID
     Route: 048
     Dates: start: 20071014
  2. CORTICOSTEROIDS [Concomitant]
     Dosage: UNK
     Dates: start: 20071014

REACTIONS (2)
  - PANCYTOPENIA [None]
  - PERINEPHRIC ABSCESS [None]
